FAERS Safety Report 5802391-3 (Version None)
Quarter: 2008Q3

REPORT INFORMATION
  Report Type: 
  Country: None (occurrence: None)
  Receive Date: 20080707
  Receipt Date: 20080627
  Transmission Date: 20090109
  Serious: Yes (Other)
  Sender: FDA-Public Use
  Company Number: US-MERCK-0706USA00963

PATIENT
  Age: 54 Year
  Sex: Female
  Weight: 95 kg

DRUGS (2)
  1. FOSAMAX [Suspect]
     Indication: OSTEOPOROSIS
     Route: 048
     Dates: start: 20060201
  2. FOSAMAX [Suspect]
     Route: 048
     Dates: start: 20031219

REACTIONS (22)
  - ARTHRITIS [None]
  - BACK PAIN [None]
  - BLOOD ALKALINE PHOSPHATASE INCREASED [None]
  - CARPAL TUNNEL SYNDROME [None]
  - COLON ADENOMA [None]
  - COLONIC POLYP [None]
  - CONVULSION [None]
  - DEPRESSION [None]
  - DRUG HYPERSENSITIVITY [None]
  - GOUTY ARTHRITIS [None]
  - HYPERSENSITIVITY [None]
  - OSTEONECROSIS [None]
  - PAIN IN JAW [None]
  - PSEUDODEMENTIA [None]
  - RHEUMATOID ARTHRITIS [None]
  - SPINAL OSTEOARTHRITIS [None]
  - SPONDYLOLISTHESIS [None]
  - SYNCOPE [None]
  - TEMPOROMANDIBULAR JOINT SYNDROME [None]
  - TRANSAMINASES INCREASED [None]
  - TRISMUS [None]
  - URGE INCONTINENCE [None]
